FAERS Safety Report 4475630-1 (Version None)
Quarter: 2004Q4

REPORT INFORMATION
  Report Type: 
  Country: None (occurrence: None)
  Receive Date: 20041012
  Receipt Date: 20040927
  Transmission Date: 20050328
  Serious: Yes (Hospitalization)
  Sender: FDA-Public Use
  Company Number: JP-JNJFOC-20041001694

PATIENT
  Sex: Male

DRUGS (1)
  1. PEPCID AC [Suspect]
     Dosage: ORAL; 10 MG, 1 IN 1 TOTAL, ORAL
     Route: 048
     Dates: start: 20040925

REACTIONS (3)
  - CHOKING [None]
  - ERYTHEMA [None]
  - URTICARIA [None]
